FAERS Safety Report 15446027 (Version 1)
Quarter: 2018Q3

REPORT INFORMATION
  Report Type: Spontaneous
  Country: US (occurrence: US)
  Receive Date: 20180928
  Receipt Date: 20180928
  Transmission Date: 20181010
  Serious: No
  Sender: FDA-Public Use
  Company Number: US-AMGEN-USASP2018072609

PATIENT
  Age: 69 Year
  Sex: Female

DRUGS (1)
  1. PROLIA [Suspect]
     Active Substance: DENOSUMAB
     Indication: OSTEOPOROSIS POSTMENOPAUSAL
     Dosage: 60 MG, Q6MO
     Route: 065
     Dates: start: 2016

REACTIONS (9)
  - Hypoaesthesia [Unknown]
  - Back pain [Not Recovered/Not Resolved]
  - Scar [Unknown]
  - Feeling abnormal [Not Recovered/Not Resolved]
  - Neck pain [Unknown]
  - Pain in extremity [Not Recovered/Not Resolved]
  - Fall [Unknown]
  - Pain [Not Recovered/Not Resolved]
  - Arthralgia [Unknown]

NARRATIVE: CASE EVENT DATE: 201708
